FAERS Safety Report 16900291 (Version 7)
Quarter: 2020Q1

REPORT INFORMATION
  Report Type: Report from Study
  Country: US (occurrence: US)
  Receive Date: 20191009
  Receipt Date: 20200319
  Transmission Date: 20200409
  Serious: Yes (Hospitalization, Disabling, Other)
  Sender: FDA-Public Use
  Company Number: US-MALLINCKRODT-T201905713

PATIENT
  Age: 59 Year
  Sex: Female

DRUGS (23)
  1. REPOSITORY CORTICOTROPIN INJECTION [Suspect]
     Active Substance: CORTICOTROPIN
     Dosage: 40 UNITS/0.6 ML, ONCE WEEKLY, MONDAY
     Route: 058
     Dates: start: 2019
  2. REPOSITORY CORTICOTROPIN INJECTION [Suspect]
     Active Substance: CORTICOTROPIN
     Dosage: 40 UNITS/0.5 ML, ONCE WEEKLY (MONDAY)
     Route: 058
  3. ATIVAN [Concomitant]
     Active Substance: LORAZEPAM
     Indication: PRODUCT USED FOR UNKNOWN INDICATION
     Dosage: UNK
     Route: 065
  4. FLORINEF ACETATE [Concomitant]
     Active Substance: FLUDROCORTISONE ACETATE
     Indication: PRODUCT USED FOR UNKNOWN INDICATION
     Dosage: UNK
     Route: 042
  5. NAMENDA [Concomitant]
     Active Substance: MEMANTINE HYDROCHLORIDE
     Indication: PRODUCT USED FOR UNKNOWN INDICATION
     Dosage: UNK
     Route: 065
  6. REPOSITORY CORTICOTROPIN INJECTION [Suspect]
     Active Substance: CORTICOTROPIN
     Dosage: 60 UNITS /0.75 ML ONCE A WEEK(MONDAY)
     Route: 058
     Dates: start: 20170109
  7. DILAUDID [Suspect]
     Active Substance: HYDROMORPHONE HYDROCHLORIDE
     Indication: PRODUCT USED FOR UNKNOWN INDICATION
     Dosage: UNK
     Route: 065
  8. ZOFRAN [Suspect]
     Active Substance: ONDANSETRON HYDROCHLORIDE
     Indication: VOMITING
  9. ZOFRAN [Suspect]
     Active Substance: ONDANSETRON HYDROCHLORIDE
     Indication: NAUSEA
  10. BENADRYL [Suspect]
     Active Substance: DIPHENHYDRAMINE HYDROCHLORIDE
     Indication: INFUSION RELATED REACTION
     Dosage: UNK
     Route: 065
  11. CORTEF [Concomitant]
     Active Substance: HYDROCORTISONE
     Indication: PRODUCT USED FOR UNKNOWN INDICATION
     Dosage: UNK
     Route: 042
  12. REPOSITORY CORTICOTROPIN INJECTION [Suspect]
     Active Substance: CORTICOTROPIN
     Dosage: 20 UNITS / .25 ML EVERY OTHER MONDAY (2/
     Route: 058
     Dates: start: 202002
  13. REPOSITORY CORTICOTROPIN INJECTION [Suspect]
     Active Substance: CORTICOTROPIN
     Indication: SYSTEMIC LUPUS ERYTHEMATOSUS
     Dosage: 80 UNITS/TWICE WEEKLY/FOR 12 WEEKS
     Route: 058
     Dates: start: 201803
  14. FENTANYL. [Suspect]
     Active Substance: FENTANYL
     Indication: RHEUMATOID ARTHRITIS
     Dosage: UNK
     Route: 065
  15. ZOFRAN [Suspect]
     Active Substance: ONDANSETRON HYDROCHLORIDE
     Indication: ABDOMINAL DISCOMFORT
     Dosage: UNK
     Route: 065
  16. REPOSITORY CORTICOTROPIN INJECTION [Suspect]
     Active Substance: CORTICOTROPIN
     Indication: RHEUMATOID ARTHRITIS
     Dosage: 80 UNITS / 1 ML, TWICE A WEEK, MONDAY/THURSDAY
     Route: 058
     Dates: start: 20170109
  17. REPOSITORY CORTICOTROPIN INJECTION [Suspect]
     Active Substance: CORTICOTROPIN
     Dosage: 80 UNITS / 1 ML, ONCE A WEEK
     Route: 058
     Dates: start: 20190930
  18. REPOSITORY CORTICOTROPIN INJECTION [Suspect]
     Active Substance: CORTICOTROPIN
     Dosage: 40 UNITS/0.6 ML, ONCE WEEKLY, MONDAY
     Route: 058
     Dates: start: 20191104
  19. FENTANYL. [Suspect]
     Active Substance: FENTANYL
     Indication: FIBROMYALGIA
  20. IMMUNOGLOBULINS NOS [Concomitant]
     Active Substance: IMMUNE GLOBULIN NOS
     Indication: PRODUCT USED FOR UNKNOWN INDICATION
     Dosage: UNK
     Route: 042
  21. REPOSITORY CORTICOTROPIN INJECTION [Suspect]
     Active Substance: CORTICOTROPIN
     Dosage: 80 UNITS / 1 ML, ONCE A WEEK
     Route: 058
     Dates: start: 20190826, end: 20190919
  22. REPOSITORY CORTICOTROPIN INJECTION [Suspect]
     Active Substance: CORTICOTROPIN
     Dosage: 80 UNITS/ML  TWICE A WEEK
     Route: 058
     Dates: start: 20190913
  23. MORPHINE [Concomitant]
     Active Substance: MORPHINE
     Indication: PRODUCT USED FOR UNKNOWN INDICATION
     Dosage: UNK
     Route: 065

REACTIONS (48)
  - Intestinal resection [Unknown]
  - Pneumonia aspiration [Unknown]
  - Malaise [Unknown]
  - Cough [Unknown]
  - Dysstasia [Unknown]
  - Intestinal obstruction [Recovered/Resolved]
  - Weight decreased [Unknown]
  - Pouchitis [Unknown]
  - Nausea [Unknown]
  - Wrong technique in product usage process [Unknown]
  - Adrenocortical insufficiency acute [Recovering/Resolving]
  - Incontinence [Unknown]
  - Vomiting [Unknown]
  - Pyrexia [Unknown]
  - Fall [Unknown]
  - Rash [Recovered/Resolved]
  - Insomnia [Unknown]
  - Ileostomy [Unknown]
  - Vocal cord dysfunction [Unknown]
  - Sepsis [Unknown]
  - Loss of consciousness [Unknown]
  - Sinus tachycardia [Unknown]
  - Fatigue [Unknown]
  - Dysuria [Recovered/Resolved]
  - Mass [Not Recovered/Not Resolved]
  - Vision blurred [Unknown]
  - Blood pressure diastolic decreased [Recovering/Resolving]
  - Dysphagia [Unknown]
  - Choking [Recovering/Resolving]
  - Gastrointestinal disorder [Unknown]
  - Central nervous system function test abnormal [Unknown]
  - Surgery [Unknown]
  - Addison^s disease [Unknown]
  - Blood iron decreased [Unknown]
  - Feeling abnormal [Unknown]
  - Chest injury [Unknown]
  - Muscle atrophy [Unknown]
  - Weight increased [Unknown]
  - Gastrostomy [Unknown]
  - Pain [Not Recovered/Not Resolved]
  - Blood potassium decreased [Unknown]
  - Immunodeficiency [Unknown]
  - Blood glucose decreased [Unknown]
  - Asthenia [Unknown]
  - Blood phosphorus decreased [Unknown]
  - Dehydration [Unknown]
  - Head injury [Unknown]
  - Oedema [Not Recovered/Not Resolved]

NARRATIVE: CASE EVENT DATE: 2019
